FAERS Safety Report 6782484-7 (Version None)
Quarter: 2010Q2

REPORT INFORMATION
  Report Type: 
  Country: None (occurrence: None)
  Receive Date: 20100616
  Receipt Date: 20100603
  Transmission Date: 20101027
  Serious: Yes (Death)
  Sender: FDA-Public Use
  Company Number: 013611

PATIENT
  Age: 9 Year
  Sex: Male
  Weight: 29 kg

DRUGS (4)
  1. METHYLPHENIDATE [Suspect]
  2. BUPROPION HCL [Concomitant]
  3. AMITRIPTYLINE [Concomitant]
  4. NORTRIPTYLINE [Concomitant]

REACTIONS (1)
  - SUDDEN DEATH [None]
